FAERS Safety Report 4718815-9 (Version None)
Quarter: 2005Q3

REPORT INFORMATION
  Report Type: 
  Country: None (occurrence: None)
  Receive Date: 20050719
  Receipt Date: 20050705
  Transmission Date: 20060218
  Serious: Yes (Death)
  Sender: FDA-Public Use
  Company Number: 2004231218US

PATIENT
  Age: 77 Year
  Sex: Female

DRUGS (4)
  1. CELEBREX [Suspect]
     Indication: ILL-DEFINED DISORDER
     Dosage: 200 MG (100 MG, 2 IN 1 D), ORAL
     Route: 048
     Dates: start: 19990809, end: 20001215
  2. TRAZODONE  (TRAZAODONE) [Concomitant]
  3. LORAZEPAM [Concomitant]
  4. PREMARIN [Concomitant]

REACTIONS (1)
  - ACUTE MYOCARDIAL INFARCTION [None]
